FAERS Safety Report 6456472-4 (Version None)
Quarter: 2009Q4

REPORT INFORMATION
  Report Type: 
  Country: None (occurrence: None)
  Receive Date: 20091125
  Receipt Date: 20091120
  Transmission Date: 20100525
  Serious: Yes (Hospitalization, Other)
  Sender: FDA-Public Use
  Company Number: US-BRISTOL-MYERS SQUIBB COMPANY-14539936

PATIENT
  Age: 52 Year
  Sex: Female

DRUGS (4)
  1. ABATACEPT [Suspect]
     Indication: RHEUMATOID ARTHRITIS
     Dosage: INTERRUPTED ON 02FEB09. NO OF COURSES:45
     Route: 058
     Dates: start: 20080331
  2. METHOTREXATE [Suspect]
     Indication: RHEUMATOID ARTHRITIS
     Dosage: INTERRUPTED ON 02-FEB-2009
     Dates: start: 19930529, end: 20090202
  3. DIOVAN [Concomitant]
     Dates: start: 20051015, end: 20090217
  4. FOLIC ACID [Concomitant]
     Dates: start: 20020615, end: 20090217

REACTIONS (3)
  - ANGIOEDEMA [None]
  - PNEUMONIA HAEMOPHILUS [None]
  - RESPIRATORY FAILURE [None]
